FAERS Safety Report 25736780 (Version 4)
Quarter: 2025Q4

REPORT INFORMATION
  Report Type: Report from Study
  Country: US (occurrence: US)
  Receive Date: 20250828
  Receipt Date: 20251027
  Transmission Date: 20260118
  Serious: Yes (Other)
  Sender: JAZZ
  Company Number: US-JAZZ PHARMACEUTICALS-2025-US-019821

PATIENT
  Age: 16 Year
  Sex: Female

DRUGS (2)
  1. EPIDIOLEX [Suspect]
     Active Substance: CANNABIDIOL
     Indication: Epilepsy
     Dosage: 1 MILLILITER, BID
     Dates: start: 20250818, end: 20250818
  2. EPIDIOLEX [Suspect]
     Active Substance: CANNABIDIOL
     Indication: Lennox-Gastaut syndrome

REACTIONS (8)
  - Dystonia [Recovered/Resolved]
  - Seizure [Unknown]
  - Gingival discomfort [Recovered/Resolved]
  - Feeling abnormal [Unknown]
  - Mood altered [Unknown]
  - Delusional disorder, unspecified type [Unknown]
  - Wrong technique in product usage process [Unknown]
  - Product temperature excursion issue [Recovered/Resolved]

NARRATIVE: CASE EVENT DATE: 20250818
